FAERS Safety Report 16554005 (Version 9)
Quarter: 2021Q4

REPORT INFORMATION
  Report Type: Report from Study
  Country: GB (occurrence: GB)
  Receive Date: 20190710
  Receipt Date: 20211217
  Transmission Date: 20220303
  Serious: Yes (Hospitalization)
  Sender: FDA-Public Use
  Company Number: GB-ROCHE-1718214

PATIENT
  Age: 31 Year
  Sex: Female

DRUGS (109)
  1. TRASTUZUMAB [Suspect]
     Active Substance: TRASTUZUMAB
     Indication: Breast cancer metastatic
     Dosage: 350 MILLIGRAM, Q3W
     Route: 042
     Dates: start: 20160303, end: 20160324
  2. TRASTUZUMAB [Suspect]
     Active Substance: TRASTUZUMAB
     Dosage: 290 MILLIGRAM, Q3W
     Route: 042
     Dates: start: 20170209, end: 20171123
  3. TRASTUZUMAB [Suspect]
     Active Substance: TRASTUZUMAB
     Dosage: 350 MILLIGRAM, Q3W
     Route: 042
     Dates: start: 20160303, end: 20160421
  4. TRASTUZUMAB [Suspect]
     Active Substance: TRASTUZUMAB
     Dosage: 280 MILLIGRAM, Q3W
     Route: 042
     Dates: start: 20160421, end: 20161124
  5. TRASTUZUMAB [Suspect]
     Active Substance: TRASTUZUMAB
     Dosage: 600 MILLIGRAM, Q3W
     Route: 058
     Dates: start: 20150326, end: 20160211
  6. TRASTUZUMAB [Suspect]
     Active Substance: TRASTUZUMAB
     Dosage: 290 MILLIGRAM, Q3W
     Route: 042
     Dates: start: 20180118
  7. PACLITAXEL [Suspect]
     Active Substance: PACLITAXEL
     Indication: Breast cancer metastatic
     Dosage: 183 MILLIGRAM, QW
     Route: 042
     Dates: start: 20150326, end: 20150812
  8. CAPECITABINE [Suspect]
     Active Substance: CAPECITABINE
     Indication: Breast cancer metastatic
     Dosage: 2000 MILLIGRAM, BID, START DATE: 19-MAR-2019
     Route: 048
     Dates: end: 20191224
  9. PERTUZUMAB [Suspect]
     Active Substance: PERTUZUMAB
     Indication: Breast cancer metastatic
     Dosage: 420 MILLIGRAM
     Route: 042
     Dates: start: 20150416, end: 20160211
  10. PERTUZUMAB [Suspect]
     Active Substance: PERTUZUMAB
     Dosage: 840 MILLIGRAM, Q3W LOADING DOSE AS PER PROTOCOL, LOADING DOSE AS PER PROTOCOL
     Route: 042
     Dates: start: 20150326
  11. DOXORUBICIN [Suspect]
     Active Substance: DOXORUBICIN
     Indication: Breast cancer metastatic
     Dosage: 130 MILLIGRAM, Q3W, START DATE: 28-JAN-2020
     Route: 042
  12. HALOPERIDOL [Concomitant]
     Active Substance: HALOPERIDOL
     Indication: Anxiety
     Dosage: 5 MILLIGRAM, QD
     Route: 058
     Dates: start: 20160509
  13. ACETAMINOPHEN [Concomitant]
     Active Substance: ACETAMINOPHEN
     Indication: Vomiting
     Dosage: 1 GRAM
     Route: 042
     Dates: start: 20150918, end: 20150919
  14. ACETAMINOPHEN [Concomitant]
     Active Substance: ACETAMINOPHEN
     Indication: Ovarian cyst
     Dosage: 4000 MILLIGRAM, QD
     Route: 042
     Dates: start: 20160718
  15. ACETAMINOPHEN [Concomitant]
     Active Substance: ACETAMINOPHEN
     Dosage: 1 GRAM
     Route: 042
     Dates: start: 20160508, end: 20160508
  16. ACETAMINOPHEN [Concomitant]
     Active Substance: ACETAMINOPHEN
     Dosage: 1000 MILLIGRAM 0.25 DAY
     Route: 042
     Dates: start: 20160718
  17. ACETAMINOPHEN [Concomitant]
     Active Substance: ACETAMINOPHEN
     Dosage: 1000 MILLIGRAM 0.25 DAY
     Route: 042
     Dates: start: 20181220, end: 20181220
  18. ACETAMINOPHEN [Concomitant]
     Active Substance: ACETAMINOPHEN
     Dosage: 1000 MILLIGRAM 0.25 DAY
     Route: 042
     Dates: start: 20190116, end: 20190120
  19. CASSIA ACUTIFOLIA [Concomitant]
     Indication: Constipation
     Dosage: 7.5 MILLIGRAM, QD
     Route: 048
     Dates: start: 20160512
  20. CASSIA ACUTIFOLIA [Concomitant]
     Dosage: 7.5 MILLIGRAM, QD
     Route: 048
     Dates: start: 201505, end: 201505
  21. CASSIA ACUTIFOLIA [Concomitant]
     Dosage: UNK, MONTHLY
     Route: 048
     Dates: start: 201603
  22. CASSIA ACUTIFOLIA [Concomitant]
     Dosage: UNK
     Route: 048
     Dates: start: 201603
  23. MORPHINE SULFATE [Concomitant]
     Active Substance: MORPHINE SULFATE
     Indication: Back pain
     Dosage: 20 MILLIGRAM
     Route: 048
     Dates: start: 20150710
  24. LORAZEPAM [Concomitant]
     Active Substance: LORAZEPAM
     Indication: Anxiety
     Dosage: 1 MILLIGRAM, 0.33 DAY
     Route: 048
     Dates: start: 201603, end: 201603
  25. LORAZEPAM [Concomitant]
     Active Substance: LORAZEPAM
     Dosage: 1 MILLIGRAM, QD
     Route: 048
     Dates: start: 20160512
  26. LORAZEPAM [Concomitant]
     Active Substance: LORAZEPAM
     Dosage: 1 MILLIGRAM, QD
     Route: 048
     Dates: start: 201809
  27. DOCUSATE SODIUM [Concomitant]
     Active Substance: DOCUSATE SODIUM
     Indication: Constipation
     Dosage: 100 MILLIGRAM, 0.33 DAY
     Route: 048
     Dates: start: 20160405, end: 20160516
  28. DOCUSATE SODIUM [Concomitant]
     Active Substance: DOCUSATE SODIUM
     Dosage: 200 MILLIGRAM, BID
     Route: 048
     Dates: start: 201603, end: 20160405
  29. DOCUSATE SODIUM [Concomitant]
     Active Substance: DOCUSATE SODIUM
     Dosage: 100 MILLIGRAM, 0.33 DAY
     Route: 048
     Dates: start: 20160516
  30. DOCUSATE SODIUM [Concomitant]
     Active Substance: DOCUSATE SODIUM
     Dosage: 300 MILLIGRAM, QD
     Route: 048
     Dates: start: 201603
  31. DALTEPARIN [Concomitant]
     Active Substance: DALTEPARIN
     Indication: Peripheral swelling
     Dosage: 18000 UNITS
     Route: 058
     Dates: start: 20150504, end: 20151027
  32. DALTEPARIN [Concomitant]
     Active Substance: DALTEPARIN
     Dosage: 5000 INTERNATIONAL UNIT, QD
     Route: 058
     Dates: start: 20160508, end: 20160516
  33. DALTEPARIN [Concomitant]
     Active Substance: DALTEPARIN
     Dosage: 1 UNK, QD
     Route: 058
     Dates: start: 20160717, end: 20160722
  34. DALTEPARIN [Concomitant]
     Active Substance: DALTEPARIN
     Dosage: 5000 INTERNATIONAL UNIT
     Route: 058
     Dates: start: 20190116, end: 20190119
  35. DALTEPARIN [Concomitant]
     Active Substance: DALTEPARIN
     Dosage: 5000 INTERNATIONAL UNIT, QD
     Route: 058
     Dates: start: 20200203, end: 20200205
  36. COCODAMOL [Concomitant]
     Active Substance: ACETAMINOPHEN\CODEINE PHOSPHATE
     Indication: Cholecystitis
     Dosage: 500 MILLIGRAM
     Route: 048
     Dates: start: 20151109, end: 201601
  37. AMOXICILLIN [Concomitant]
     Active Substance: AMOXICILLIN
     Indication: Nasopharyngitis
     Dosage: 500 MILLIGRAM, 0.33 DAY
     Route: 048
     Dates: start: 20151007, end: 20151013
  38. AMOXICILLIN [Concomitant]
     Active Substance: AMOXICILLIN
     Indication: Lower respiratory tract infection
     Dosage: 500 MILLIGRAM, 0.33 DAY
     Route: 048
     Dates: start: 20160309, end: 20160312
  39. Cystitis relief [Concomitant]
     Dosage: 1 SACHET
     Route: 048
     Dates: start: 201503
  40. OMEPRAZOLE [Concomitant]
     Active Substance: OMEPRAZOLE
     Indication: Gastrooesophageal reflux disease
     Dosage: 20 MILLIGRAM
     Route: 048
     Dates: start: 201505
  41. IBUPROFEN [Concomitant]
     Active Substance: IBUPROFEN
     Indication: Back pain
     Dosage: 1200 MILLIGRAM, QD
     Route: 048
     Dates: start: 20150509
  42. IBUPROFEN [Concomitant]
     Active Substance: IBUPROFEN
     Dosage: 400 MILLIGRAM, 0.33 DAY
     Route: 048
     Dates: start: 20150509
  43. METOCLOPRAMIDE [Concomitant]
     Active Substance: METOCLOPRAMIDE
     Indication: Vomiting
     Dosage: 10 MILLIGRAM
     Route: 065
     Dates: start: 20150326, end: 201505
  44. METOCLOPRAMIDE [Concomitant]
     Active Substance: METOCLOPRAMIDE
     Dosage: 10 MILLIGRAM 0.33 DAY
     Route: 042
     Dates: start: 20160719, end: 20160722
  45. METOCLOPRAMIDE [Concomitant]
     Active Substance: METOCLOPRAMIDE
     Dosage: 30 MILLIGRAM, QD
     Route: 065
     Dates: start: 20150813
  46. METOCLOPRAMIDE [Concomitant]
     Active Substance: METOCLOPRAMIDE
     Dosage: 10 MILLIGRAM, 0.33 DAY
     Dates: start: 20150813
  47. CYCLIZINE [Concomitant]
     Active Substance: CYCLIZINE
     Indication: Nausea
     Dosage: 50 MILLIGRAM, 0.33 DAY
     Route: 048
     Dates: start: 201603, end: 201607
  48. CYCLIZINE [Concomitant]
     Active Substance: CYCLIZINE
     Dosage: 50 MILLIGRAM, PRN
     Route: 048
     Dates: start: 20181220, end: 20181220
  49. CYCLIZINE [Concomitant]
     Active Substance: CYCLIZINE
     Dosage: 50 MILLIGRAM, PRN
     Route: 048
     Dates: start: 201809
  50. DICLOFENAC [Concomitant]
     Active Substance: DICLOFENAC
     Indication: Back pain
     Dosage: 50 MILLIGRAM
     Route: 048
     Dates: start: 20150721, end: 201508
  51. DOXYCYCLINE [Concomitant]
     Active Substance: DOXYCYCLINE
     Dosage: 100 MILLIGRAM
     Route: 048
     Dates: start: 20150722, end: 20150728
  52. DOXYCYCLINE [Concomitant]
     Active Substance: DOXYCYCLINE
     Dosage: 200 MILLIGRAM
     Route: 048
     Dates: start: 20150721, end: 20150721
  53. CHLORHEXIDINE [Concomitant]
     Active Substance: CHLORHEXIDINE
     Indication: Mucosal inflammation
     Dosage: 20 MILLIGRAM SOLUTION
     Route: 048
     Dates: start: 201603
  54. CHLORHEXIDINE [Concomitant]
     Active Substance: CHLORHEXIDINE
     Indication: Mouth ulceration
     Dosage: 10 MILLIGRAM, BID
     Route: 048
     Dates: start: 20200205
  55. CHLORHEXIDINE [Concomitant]
     Active Substance: CHLORHEXIDINE
     Dosage: 10 MILLILITER, BID
     Route: 048
     Dates: start: 20200205
  56. TRIMETHOPRIM [Concomitant]
     Active Substance: TRIMETHOPRIM
     Indication: Urinary tract infection
     Dosage: 400 MILLIGRAM, QD
     Route: 048
     Dates: start: 20150604, end: 20150606
  57. TRIMETHOPRIM [Concomitant]
     Active Substance: TRIMETHOPRIM
     Dosage: 200 MILLIGRAM, BID
     Route: 048
     Dates: start: 20150604, end: 20150606
  58. MORPHINE SULFATE [Concomitant]
     Active Substance: MORPHINE SULFATE
     Indication: Back pain
     Dosage: 20 MILLIGRAM
     Route: 048
     Dates: start: 20150513, end: 20150518
  59. MORPHINE SULFATE [Concomitant]
     Active Substance: MORPHINE SULFATE
     Dosage: 10 MILLIGRAM
     Route: 065
     Dates: start: 20150918, end: 20150919
  60. GABAPENTIN [Concomitant]
     Active Substance: GABAPENTIN
     Dosage: 900 MILLIGRAM, QD
     Route: 048
     Dates: start: 201304
  61. GABAPENTIN [Concomitant]
     Active Substance: GABAPENTIN
     Dosage: 300 MILLIGRAM, 0.33 DAY
     Route: 048
     Dates: start: 201304
  62. AMITRIPTYLINE [Concomitant]
     Active Substance: AMITRIPTYLINE
     Indication: Anxiety
     Dosage: 20 MILLIGRAM
     Route: 048
     Dates: start: 20160228, end: 20160302
  63. AMITRIPTYLINE [Concomitant]
     Active Substance: AMITRIPTYLINE
     Dosage: 150 MILLIGRAM, PRN
     Route: 048
     Dates: start: 201809
  64. AMITRIPTYLINE [Concomitant]
     Active Substance: AMITRIPTYLINE
     Dosage: 150 MILLIGRAM
     Route: 048
     Dates: start: 201809
  65. POLYETHYLENE GLYCOLS [Concomitant]
     Active Substance: POLYETHYLENE GLYCOLS
     Dosage: SACHET
     Route: 048
     Dates: start: 201505, end: 201506
  66. POLYETHYLENE GLYCOLS [Concomitant]
     Active Substance: POLYETHYLENE GLYCOLS
     Dosage: 2, QD
     Route: 048
     Dates: start: 20160718, end: 20160722
  67. POLYETHYLENE GLYCOLS [Concomitant]
     Active Substance: POLYETHYLENE GLYCOLS
     Dosage: UNK, BID
     Route: 048
     Dates: start: 20160718, end: 20160722
  68. CODEINE [Concomitant]
     Active Substance: CODEINE
     Dosage: 15 GRAM
     Route: 048
     Dates: start: 201504
  69. DOCUSATE [Concomitant]
     Active Substance: DOCUSATE
     Indication: Constipation
     Dosage: 200 MILLIGRAM, BID
     Route: 048
     Dates: start: 201603
  70. DOCUSATE [Concomitant]
     Active Substance: DOCUSATE
     Dosage: 300 MILLIGRAM, QD
     Route: 048
     Dates: start: 20160405, end: 20160516
  71. DOCUSATE [Concomitant]
     Active Substance: DOCUSATE
     Dosage: 300 UNK, QD
     Route: 048
     Dates: start: 20160516
  72. DOCUSATE [Concomitant]
     Active Substance: DOCUSATE
     Dosage: UNK
     Route: 048
     Dates: start: 201603, end: 20160405
  73. NYSTATIN [Concomitant]
     Active Substance: NYSTATIN
     Indication: Mucosal inflammation
     Dosage: 4, 100000 U
     Route: 048
     Dates: start: 20160516
  74. NYSTATIN [Concomitant]
     Active Substance: NYSTATIN
     Dosage: 4, QD 100000 U
     Route: 050
     Dates: start: 201603, end: 20160330
  75. NYSTATIN [Concomitant]
     Active Substance: NYSTATIN
     Dosage: 100000 U 0.25 DAY
     Dates: start: 201603, end: 20160330
  76. NYSTATIN [Concomitant]
     Active Substance: NYSTATIN
     Dosage: 100000 U 0.25 DAY
     Route: 048
     Dates: start: 20160516
  77. BUTYLSCOPOLAMINE BROMIDE [Concomitant]
     Active Substance: BUTYLSCOPOLAMINE BROMIDE
     Indication: Diarrhoea
     Dosage: 10 MILLIGRAM
     Route: 048
     Dates: start: 20160405
  78. BUTYLSCOPOLAMINE BROMIDE [Concomitant]
     Active Substance: BUTYLSCOPOLAMINE BROMIDE
     Dosage: 20 MILLIGRAM, 0.33 DAY
     Route: 048
     Dates: start: 20150721
  79. DULOXETINE [Concomitant]
     Active Substance: DULOXETINE
     Indication: Anxiety
     Dosage: 120 MILLIGRAM, QD
     Route: 048
     Dates: start: 201603
  80. DULOXETINE [Concomitant]
     Active Substance: DULOXETINE
     Dosage: 60 MILLIGRAM, BID
     Route: 048
     Dates: start: 201603
  81. PIPERACILLIN SODIUM\TAZOBACTAM SODIUM [Concomitant]
     Active Substance: PIPERACILLIN SODIUM\TAZOBACTAM SODIUM
     Indication: Lower respiratory tract infection
     Dosage: 4.5 MILLIGRAM, 0.33 DAY
     Route: 042
     Dates: start: 20160304, end: 20160309
  82. PIPERACILLIN SODIUM\TAZOBACTAM SODIUM [Concomitant]
     Active Substance: PIPERACILLIN SODIUM\TAZOBACTAM SODIUM
     Indication: C-reactive protein increased
     Dosage: 4.5 MILLIGRAM, 0.33 DAY
     Route: 042
     Dates: start: 20181222, end: 20181222
  83. PIPERACILLIN SODIUM\TAZOBACTAM SODIUM [Concomitant]
     Active Substance: PIPERACILLIN SODIUM\TAZOBACTAM SODIUM
     Dosage: 4.5 MILLIGRAM, 0.33 DAY
     Route: 042
     Dates: start: 20200204, end: 20200206
  84. DIAZEPAM [Concomitant]
     Active Substance: DIAZEPAM
     Indication: Back pain
     Dosage: 2 MILLIGRAM
     Route: 048
     Dates: start: 20150629, end: 201603
  85. LIDOCAINE [Concomitant]
     Active Substance: LIDOCAINE
     Indication: Back pain
     Dosage: 5 PERCENT
     Route: 062
     Dates: start: 20151109, end: 201603
  86. BENZYDAMINE HYDROCHLORIDE [Concomitant]
     Active Substance: BENZYDAMINE HYDROCHLORIDE
     Indication: Mucosal inflammation
     Dosage: 15 MILLIGRAM
     Route: 048
     Dates: start: 201603, end: 20160330
  87. CYCLIZINE [Concomitant]
     Active Substance: CYCLIZINE
     Indication: Nausea
     Dosage: 50 MILLIGRAM, 0.33 DAY
     Route: 042
     Dates: start: 20160717, end: 20160718
  88. CYCLIZINE [Concomitant]
     Active Substance: CYCLIZINE
     Dosage: 50 MILLIGRAM
     Route: 042
     Dates: start: 20160508, end: 20160509
  89. CYCLIZINE [Concomitant]
     Active Substance: CYCLIZINE
     Dosage: 1 UNK, PRN
     Route: 042
     Dates: start: 20190119, end: 20190122
  90. CYCLIZINE [Concomitant]
     Active Substance: CYCLIZINE
     Dosage: UNK
     Route: 042
     Dates: start: 20190119, end: 20190122
  91. HALOPERIDOL [Concomitant]
     Active Substance: HALOPERIDOL
     Indication: Anxiety
     Dosage: 15 MILLIGRAM
     Route: 048
     Dates: start: 201603, end: 201603
  92. HALOPERIDOL [Concomitant]
     Active Substance: HALOPERIDOL
     Dosage: 1.5 MILLIGRAM
     Route: 048
     Dates: start: 201603, end: 201603
  93. HALOPERIDOL [Concomitant]
     Active Substance: HALOPERIDOL
     Dosage: 1.5 MILLIGRAM, QD
     Route: 048
     Dates: start: 200109
  94. HALOPERIDOL [Concomitant]
     Active Substance: HALOPERIDOL
     Dosage: 1.5 MILLIGRAM
     Route: 048
     Dates: start: 200109
  95. AMOXICILLIN [Concomitant]
     Active Substance: AMOXICILLIN
     Indication: Lower respiratory tract infection
     Dosage: 1500 MILLIGRAM, QD, START DATE: 09-MAR-2016
     Route: 048
     Dates: end: 20160312
  96. AMOXICILLIN [Concomitant]
     Active Substance: AMOXICILLIN
     Dosage: 500 MILLIGRAM
     Route: 048
     Dates: start: 20190121, end: 20190123
  97. ACETAMINOPHEN [Concomitant]
     Active Substance: ACETAMINOPHEN
     Indication: Vomiting
     Dosage: 1000 GRAM
     Route: 048
     Dates: start: 201504
  98. ACETAMINOPHEN [Concomitant]
     Active Substance: ACETAMINOPHEN
     Indication: Ovarian cyst
  99. ALBUTEROL [Concomitant]
     Active Substance: ALBUTEROL
     Indication: Asthma
     Dosage: AEROSOL IH (INHALED), START DATE: ??-JAN-2019
     Route: 048
  100. BECLOMETHASONE DIPROPIONATE [Concomitant]
     Active Substance: BECLOMETHASONE DIPROPIONATE
     Indication: Asthma
     Dosage: AEROSOL IH (INHALED), ??-JAN-2019
     Route: 065
  101. TRAMADOL [Concomitant]
     Active Substance: TRAMADOL
     Indication: Pain
     Dosage: 50 MILLIGRAM, PRN, START DATE:20-DEC-2018
     Route: 048
     Dates: end: 20181221
  102. TRAMADOL [Concomitant]
     Active Substance: TRAMADOL
     Dosage: 50 MILLIGRAM, 20-DEC-2018
     Route: 048
     Dates: end: 20181221
  103. CREON [Concomitant]
     Active Substance: PANCRELIPASE AMYLASE\PANCRELIPASE LIPASE\PANCRELIPASE PROTEASE
     Dosage: UNK, START DATE: ??-SEP-2018
     Route: 048
  104. LEVOMEPROMAZINE [Concomitant]
     Active Substance: LEVOMEPROMAZINE
     Dosage: 6.25 MILLIGRAM, PRN,START DATE: 16-JAN-2019
     Route: 042
     Dates: end: 20190117
  105. SENNA [Concomitant]
     Active Substance: SENNA LEAF\SENNOSIDES\SENNOSIDES A AND B
     Indication: Constipation
     Dosage: 7.5 MILLIGRAM
     Route: 048
     Dates: start: 201505, end: 201505
  106. SENNA [Concomitant]
     Active Substance: SENNA LEAF\SENNOSIDES\SENNOSIDES A AND B
     Dosage: UNK
     Route: 048
     Dates: start: 201603
  107. SENNA [Concomitant]
     Active Substance: SENNA LEAF\SENNOSIDES\SENNOSIDES A AND B
     Dosage: 7.5 MILLIGRAM, QD
     Route: 048
     Dates: start: 20160512
  108. SENNA [Concomitant]
     Active Substance: SENNA LEAF\SENNOSIDES\SENNOSIDES A AND B
     Dosage: UNK
     Route: 048
     Dates: start: 201605
  109. AMOXICILLIN\CLAVULANATE POTASSIUM [Concomitant]
     Active Substance: AMOXICILLIN\CLAVULANATE POTASSIUM
     Dosage: 500 MILLIGRAM, START DATE: 21-JAN-2019
     Route: 048
     Dates: end: 20190123

REACTIONS (29)
  - Gastrointestinal disorder [Not Recovered/Not Resolved]
  - Gingival bleeding [Recovered/Resolved]
  - Rhinorrhoea [Recovered/Resolved]
  - Peripheral swelling [Recovered/Resolved]
  - Condition aggravated [Unknown]
  - Urinary tract infection [Recovered/Resolved]
  - Nasopharyngitis [Unknown]
  - Depressed mood [Not Recovered/Not Resolved]
  - Lower respiratory tract infection [Recovered/Resolved]
  - Gastroenteritis viral [Recovered/Resolved]
  - Abdominal pain upper [Recovered/Resolved with Sequelae]
  - Viral infection [Recovered/Resolved]
  - Hypoaesthesia [Recovered/Resolved]
  - Abdominal pain [Recovered/Resolved]
  - Dizziness [Not Recovered/Not Resolved]
  - Vomiting [Recovered/Resolved]
  - Pain [Recovering/Resolving]
  - Insomnia [Not Recovered/Not Resolved]
  - Fatigue [Not Recovered/Not Resolved]
  - Anxiety [Not Recovered/Not Resolved]
  - Back pain [Recovered/Resolved with Sequelae]
  - Nausea [Not Recovered/Not Resolved]
  - Alanine aminotransferase increased [Recovered/Resolved]
  - Mucosal inflammation [Recovered/Resolved]
  - Headache [Recovered/Resolved]
  - Constipation [Unknown]
  - Diarrhoea [Recovered/Resolved]
  - Anaemia [Recovered/Resolved]
  - Gastrooesophageal reflux disease [Not Recovered/Not Resolved]

NARRATIVE: CASE EVENT DATE: 20150501
